FAERS Safety Report 11487805 (Version 4)
Quarter: 2020Q1

REPORT INFORMATION
  Report Type: Spontaneous
  Country: US (occurrence: US)
  Receive Date: 20150909
  Receipt Date: 20200320
  Transmission Date: 20200409
  Serious: Yes (Other)
  Sender: FDA-Public Use
  Company Number: US-JAZZ-2015-US-002812

PATIENT
  Age: 15 Year
  Sex: Male

DRUGS (2)
  1. XYREM [Suspect]
     Active Substance: SODIUM OXYBATE
     Indication: NARCOLEPSY
     Dosage: 2 G, BID
     Route: 048
     Dates: start: 201410, end: 201411
  2. XYREM [Suspect]
     Active Substance: SODIUM OXYBATE
     Indication: CATAPLEXY
     Dosage: 2.5 G, BID
     Route: 048
     Dates: start: 201411

REACTIONS (5)
  - Ear infection [Unknown]
  - Bronchitis [Unknown]
  - Off label use [Unknown]
  - Pneumonia [Unknown]
  - Influenza [Unknown]

NARRATIVE: CASE EVENT DATE: 20170111
